FAERS Safety Report 23094433 (Version 2)
Quarter: 2023Q4

REPORT INFORMATION
  Report Type: Spontaneous
  Country: HR (occurrence: HR)
  Receive Date: 20231023
  Receipt Date: 20231116
  Transmission Date: 20240110
  Serious: Yes (Hospitalization, Disabling, Other)
  Sender: FDA-Public Use
  Company Number: None

PATIENT
  Age: 4 Year
  Sex: Male
  Weight: 18 kg

DRUGS (4)
  1. KEPPRA [Suspect]
     Active Substance: LEVETIRACETAM
     Indication: Febrile convulsion
     Dosage: 2 MILLILITER, SYRUP
     Route: 048
     Dates: start: 20200623, end: 20230426
  2. PRIORIX [Suspect]
     Active Substance: MEASLES-MUMPS-RUBELLA VIRUS VACCINE
     Indication: Prophylaxis
     Dosage: 0.5 MILLILITER PER DAY, DOSE NUMBER: 0VACCINE EXPIRY DATE: 201909 VACCINATION SESSION: ROUTINE SESSI
     Dates: start: 20190925, end: 20190925
  3. PREVNAR 13 [Suspect]
     Active Substance: PNEUMOCOCCAL 13-VALENT CONJUGATE VACCINE
     Indication: Prophylaxis
     Dosage: 0.5 MILLILITER PER DAY, DOSE NUMBER: 2VACCINE EXPIRY DATE: 202005 VACCINATION SESSION: ROUTINE SESSI
     Dates: start: 20190315, end: 20190315
  4. PREVNAR 13 [Suspect]
     Active Substance: PNEUMOCOCCAL 13-VALENT CONJUGATE VACCINE
     Dosage: 0.5 MILLILITER, PER DAY, DOSE NUMBER: 1VACCINE EXPIRY DATE: 202001 VACCINATION SESSION: ROUTINE SESS
     Dates: start: 20190115, end: 20190115

REACTIONS (6)
  - Viral infection [Recovered/Resolved with Sequelae]
  - Febrile convulsion [Recovered/Resolved with Sequelae]
  - Electrocardiogram QT prolonged [Recovered/Resolved with Sequelae]
  - Vaccination failure [Recovered/Resolved with Sequelae]
  - Ear infection [Recovered/Resolved with Sequelae]
  - Product use in unapproved indication [Unknown]

NARRATIVE: CASE EVENT DATE: 20191001
